FAERS Safety Report 5818807-2 (Version None)
Quarter: 2008Q3

REPORT INFORMATION
  Report Type: 
  Country: None (occurrence: None)
  Receive Date: 20080723
  Receipt Date: 20080710
  Transmission Date: 20090109
  Serious: Yes (Hospitalization)
  Sender: FDA-Public Use
  Company Number: US-JNJFOC-20080704649

PATIENT
  Sex: Female
  Weight: 49.9 kg

DRUGS (4)
  1. ULTRACET [Suspect]
     Indication: BREAKTHROUGH PAIN
     Route: 048
  2. DURAGESIC-100 [Concomitant]
     Route: 062
  3. DURAGESIC-100 [Concomitant]
     Indication: PAIN
     Route: 062
  4. FENTANYL TRANSDERMAL SYSTEM [Concomitant]
     Indication: PAIN
     Route: 062

REACTIONS (5)
  - AMNESIA [None]
  - CONVULSION [None]
  - HEADACHE [None]
  - HYPERSENSITIVITY [None]
  - VISUAL ACUITY REDUCED [None]
